FAERS Safety Report 16417821 (Version 3)
Quarter: 2019Q2

REPORT INFORMATION
  Report Type: Report from Study
  Country: US (occurrence: US)
  Receive Date: 20190611
  Receipt Date: 20190621
  Transmission Date: 20190711
  Serious: Yes (Hospitalization, Other)
  Sender: FDA-Public Use
  Company Number: US-GILEAD-2019-0412872

PATIENT
  Age: 70 Year
  Sex: Female

DRUGS (1)
  1. RANOLAZINE. [Suspect]
     Active Substance: RANOLAZINE
     Indication: ANGINA PECTORIS
     Dosage: 500 MG, BID
     Route: 048

REACTIONS (6)
  - Angina pectoris [Not Recovered/Not Resolved]
  - Product use issue [Not Recovered/Not Resolved]
  - Cardiac discomfort [Recovering/Resolving]
  - Product dose omission [Not Recovered/Not Resolved]
  - Muscle spasms [Recovering/Resolving]
  - Muscle spasms [Not Recovered/Not Resolved]

NARRATIVE: CASE EVENT DATE: 20190606
